FAERS Safety Report 9403241 (Version 3)
Quarter: 2013Q3

REPORT INFORMATION
  Report Type: Spontaneous
  Country: JP (occurrence: JP)
  Receive Date: 20130716
  Receipt Date: 20130802
  Transmission Date: 20140515
  Serious: Yes (Hospitalization)
  Sender: FDA-Public Use
  Company Number: JP-BAYER-2013-084439

PATIENT
  Age: 69 Year
  Sex: Male

DRUGS (1)
  1. BAYASPIRIN [Suspect]
     Indication: CEREBRAL INFARCTION
     Dosage: DAILY DOSE 100 MG
     Route: 048

REACTIONS (3)
  - Large intestinal stenosis [Recovered/Resolved]
  - Large intestinal ulcer [Recovered/Resolved]
  - Haematochezia [Recovered/Resolved]
